FAERS Safety Report 12333811 (Version 3)
Quarter: 2017Q1

REPORT INFORMATION
  Report Type: Report from Study
  Country: US (occurrence: US)
  Receive Date: 20160504
  Receipt Date: 20170324
  Transmission Date: 20170428
  Serious: Yes (Hospitalization)
  Sender: FDA-Public Use
  Company Number: US-ROCHE-1673381

PATIENT
  Age: 76 Year
  Sex: Male
  Weight: 133.93 kg

DRUGS (3)
  1. LEVAQUIN [Concomitant]
     Active Substance: LEVOFLOXACIN
     Indication: PRODUCTIVE COUGH
     Dosage: 750 MG TABLET BY MOUTH EVERY OTHER DAY
     Route: 048
     Dates: start: 201701, end: 20170131
  2. ESBRIET [Suspect]
     Active Substance: PIRFENIDONE
     Indication: IDIOPATHIC PULMONARY FIBROSIS
     Dosage: TAKE 3 CAPSULES 3 TIMES A DAY
     Route: 048
     Dates: start: 201502
  3. ESBRIET [Suspect]
     Active Substance: PIRFENIDONE
     Route: 048
     Dates: start: 20150302

REACTIONS (7)
  - Dyspnoea [Unknown]
  - Dizziness [Unknown]
  - Pneumonia [Recovered/Resolved]
  - Productive cough [Not Recovered/Not Resolved]
  - Decreased appetite [Unknown]
  - Bronchitis [Recovered/Resolved]
  - Productive cough [Unknown]

NARRATIVE: CASE EVENT DATE: 20170113
